FAERS Safety Report 5946706-4 (Version None)
Quarter: 2008Q4

REPORT INFORMATION
  Report Type: 
  Country: None (occurrence: None)
  Receive Date: 20081110
  Receipt Date: 20080923
  Transmission Date: 20090506
  Serious: No
  Sender: FDA-Public Use
  Company Number: A0748720A

PATIENT
  Sex: Female

DRUGS (1)
  1. ALTABAX [Suspect]
     Indication: DRUG USE FOR UNKNOWN INDICATION
     Dosage: 1APP SINGLE DOSE
     Route: 061

REACTIONS (3)
  - APPLICATION SITE SWELLING [None]
  - FEELING HOT [None]
  - RASH [None]
